FAERS Safety Report 9476080 (Version 1)
Quarter: 2013Q3

REPORT INFORMATION
  Report Type: Spontaneous
  Country: US (occurrence: None)
  Receive Date: 20130822
  Receipt Date: 20130822
  Transmission Date: 20140515
  Serious: No
  Sender: FDA-Public Use
  Company Number: None

PATIENT
  Age: 43 Year
  Sex: Male

DRUGS (1)
  1. TECFIDERA [Suspect]
     Indication: MULTIPLE SCLEROSIS
     Dosage: 240MG TWICE A DAY BY MOUTH?REDACTED END USE DATE
     Route: 048
     Dates: start: 20130827, end: 201308

REACTIONS (1)
  - Gait disturbance [None]
